FAERS Safety Report 5257940-3 (Version None)
Quarter: 2007Q1

REPORT INFORMATION
  Report Type: 
  Country: None (occurrence: None)
  Receive Date: 20070307
  Receipt Date: 20061031
  Transmission Date: 20070707
  Serious: No
  Sender: FDA-Public Use
  Company Number: S2006US19567

PATIENT
  Sex: Female

DRUGS (4)
  1. REQUIP [Suspect]
     Indication: PARKINSON'S DISEASE
     Dosage: 3MG THREE TIMES PER DAY
     Route: 048
     Dates: start: 20010101
  2. SINEMET [Suspect]
     Indication: PARKINSON'S DISEASE
     Route: 048
     Dates: start: 20010101
  3. AMANTADINE HCL [Concomitant]
     Dosage: 200MG TWICE PER DAY
     Route: 048
  4. UNSPECIFIED MEDICATIONS [Concomitant]

REACTIONS (3)
  - DYSKINESIA [None]
  - FREEZING PHENOMENON [None]
  - MALAISE [None]
